FAERS Safety Report 23087743 (Version 2)
Quarter: 2023Q4

REPORT INFORMATION
  Report Type: Spontaneous
  Country: US (occurrence: US)
  Receive Date: 20231020
  Receipt Date: 20231110
  Transmission Date: 20240110
  Serious: Yes (Other)
  Sender: FDA-Public Use
  Company Number: US-MLMSERVICE-20231005-4590123-1

PATIENT
  Age: 61 Year
  Sex: Female

DRUGS (1)
  1. FLECAINIDE [Suspect]
     Active Substance: FLECAINIDE
     Indication: Atrial fibrillation
     Dosage: 100 MILLIGRAM, TWO TIMES A DAY
     Route: 065

REACTIONS (9)
  - Electrocardiogram QRS complex prolonged [Unknown]
  - Bundle branch block right [Recovered/Resolved]
  - Electrocardiogram QT prolonged [Unknown]
  - Acute kidney injury [Unknown]
  - Hyponatraemia [Unknown]
  - Nodal arrhythmia [Recovered/Resolved]
  - Seizure [Recovered/Resolved]
  - Hypotension [Recovering/Resolving]
  - Toxicity to various agents [Unknown]
